FAERS Safety Report 24200211 (Version 1)
Quarter: 2024Q3

REPORT INFORMATION
  Report Type: Report from Study
  Country: CA (occurrence: CA)
  Receive Date: 20240812
  Receipt Date: 20240812
  Transmission Date: 20241017
  Serious: Yes (Other)
  Sender: AMGEN
  Company Number: CA-AMGEN-CANSL2024156309

PATIENT
  Age: 77 Year
  Sex: Male

DRUGS (1)
  1. REPATHA [Suspect]
     Active Substance: EVOLOCUMAB
     Indication: Arteriosclerosis
     Dosage: 140 MILLIGRAM, Q2WK (TWICE A MONTH)
     Route: 065
     Dates: start: 20240725

REACTIONS (3)
  - Loss of consciousness [Unknown]
  - Head injury [Unknown]
  - Limb injury [Unknown]

NARRATIVE: CASE EVENT DATE: 20240801
